FAERS Safety Report 5711729-7 (Version None)
Quarter: 2008Q2

REPORT INFORMATION
  Report Type: 
  Country: None (occurrence: None)
  Receive Date: 20080421
  Receipt Date: 20080407
  Transmission Date: 20081010
  Serious: Yes (Other)
  Sender: FDA-Public Use
  Company Number: PHHY2008AT04848

PATIENT

DRUGS (2)
  1. FEMARA [Suspect]
     Indication: BREAST CANCER
     Dosage: 2.5 MG, QD
     Route: 048
     Dates: start: 20070201
  2. OLEOVIT-D3 [Concomitant]
     Dosage: DOSEAGE DEPENDING ON LEVEL
     Route: 048
     Dates: start: 20071101

REACTIONS (5)
  - BLOOD CREATINE PHOSPHOKINASE INCREASED [None]
  - HYPERPARATHYROIDISM PRIMARY [None]
  - LYMPHOEDEMA [None]
  - MYOGLOBIN BLOOD INCREASED [None]
  - PARATHYROIDECTOMY [None]
